FAERS Safety Report 6546369-3 (Version None)
Quarter: 2010Q1

REPORT INFORMATION
  Report Type: 
  Country: None (occurrence: None)
  Receive Date: 20100119
  Receipt Date: 20100104
  Transmission Date: 20100710
  Serious: Yes (Death)
  Sender: FDA-Public Use
  Company Number: 2010SCPR000069

PATIENT
  Age: 70 Year
  Sex: Female

DRUGS (1)
  1. VERAPAMIL EXTENDED RELEASE (VERAPAMIL HYDROCHLORIDE) [Suspect]
     Indication: DRUG USE FOR UNKNOWN INDICATION
     Dosage: ORAL
     Route: 048

REACTIONS (1)
  - MEDICATION ERROR [None]
